FAERS Safety Report 17676406 (Version 1)
Quarter: 2020Q2

REPORT INFORMATION
  Report Type: Spontaneous
  Country: US (occurrence: US)
  Receive Date: 20200415
  Receipt Date: 20200415
  Transmission Date: 20200714
  Serious: Yes (Other)
  Sender: FDA-Public Use
  Company Number: None

PATIENT
  Age: 65 Year
  Sex: Male

DRUGS (1)
  1. TICAGRELOR (TICAGRELOR 90MG TAB) [Suspect]
     Active Substance: TICAGRELOR
     Indication: VASCULAR DEVICE USER
     Route: 048
     Dates: start: 20181206, end: 20181206

REACTIONS (3)
  - Wheezing [None]
  - Adverse drug reaction [None]
  - Dyspnoea [None]

NARRATIVE: CASE EVENT DATE: 20181206
